FAERS Safety Report 10407641 (Version 1)
Quarter: 2014Q1

REPORT INFORMATION
  Report Type: Spontaneous
  Country: US (occurrence: None)
  Receive Date: 20140131
  Receipt Date: 20140131
  Transmission Date: 20141002
  Serious: Yes (Other)
  Sender: FDA-Public Use
  Company Number: 092665U

PATIENT
  Sex: Female
  Weight: 90.7 kg

DRUGS (2)
  1. KEPPRA [Suspect]
     Indication: CONVULSION
     Dates: start: 2012
  2. TOPAMAX [Concomitant]

REACTIONS (2)
  - Grand mal convulsion [None]
  - Amnesia [None]
